FAERS Safety Report 14476938 (Version 1)
Quarter: 2018Q1

REPORT INFORMATION
  Report Type: Report from Study
  Country: US (occurrence: US)
  Receive Date: 20180201
  Receipt Date: 20180201
  Transmission Date: 20180509
  Serious: No
  Sender: FDA-Public Use
  Company Number: US-EXELIXIS-CABO-16007789

PATIENT
  Age: 73 Year
  Sex: Female

DRUGS (17)
  1. COMETRIQ [Suspect]
     Active Substance: CABOZANTINIB S-MALATE
     Indication: BREAST CANCER FEMALE
  2. OCUVITE [Concomitant]
     Active Substance: VITAMINS
  3. VITAMIN C [Concomitant]
     Active Substance: ASCORBIC ACID
  4. METOPROLOL. [Concomitant]
     Active Substance: METOPROLOL
  5. COMETRIQ [Suspect]
     Active Substance: CABOZANTINIB S-MALATE
     Indication: THYROID CANCER
     Dosage: 20 MG, QD
     Route: 048
     Dates: start: 20140321, end: 20140408
  6. METFORMIN [Concomitant]
     Active Substance: METFORMIN HYDROCHLORIDE
  7. SPIRONOLACTONE. [Concomitant]
     Active Substance: SPIRONOLACTONE
  8. LEVOTHYROXINE. [Concomitant]
     Active Substance: LEVOTHYROXINE
  9. DIGOXIN. [Concomitant]
     Active Substance: DIGOXIN
  10. FUROSEMIDE. [Concomitant]
     Active Substance: FUROSEMIDE
  11. TRAVATAN [Concomitant]
     Active Substance: TRAVOPROST
  12. ASPIRIN (E.C.) [Concomitant]
     Active Substance: ASPIRIN
  13. COMETRIQ [Suspect]
     Active Substance: CABOZANTINIB S-MALATE
     Indication: IRON DEFICIENCY ANAEMIA
     Dosage: 40 MG, ALTERNATING WITH 20 MG QOD
     Route: 048
     Dates: start: 20141119, end: 201611
  14. POTASSIUM [Concomitant]
     Active Substance: POTASSIUM
  15. GLUCOSAMINE/CHONDROITIN [Concomitant]
  16. CALCIUM [Concomitant]
     Active Substance: CALCIUM
  17. COENZYME Q10 [Concomitant]
     Active Substance: UBIDECARENONE

REACTIONS (2)
  - Epistaxis [Unknown]
  - Productive cough [Unknown]

NARRATIVE: CASE EVENT DATE: 201612
